FAERS Safety Report 8960959 (Version 1)
Quarter: 2012Q4

REPORT INFORMATION
  Report Type: 
  Country: US (occurrence: US)
  Receive Date: 20121212
  Receipt Date: 20121212
  Transmission Date: 20130627
  Serious: No
  Sender: FDA-Public Use
  Company Number: US-ASTRAZENECA-2012SE89961

PATIENT
  Age: 67 Year
  Sex: Male

DRUGS (9)
  1. BRILINTA [Suspect]
     Dosage: TOTAL DAILY DOSE 90MG, FREQUENCY BID
     Route: 048
     Dates: start: 20121116, end: 201211
  2. LISINOPRIL/HCTZ [Suspect]
     Dosage: 20/12.5,QD
     Route: 048
  3. METOPROLOL ER [Suspect]
     Dosage: 100 QD
     Route: 065
  4. CRESTOR [Suspect]
     Route: 048
  5. PROTONIX [Concomitant]
  6. EFFIENT [Concomitant]
     Dosage: 100,QD
  7. NOVOLOG [Concomitant]
  8. LANTUS [Concomitant]
  9. ISOSORBIDE [Concomitant]
     Dosage: 30, DAILY

REACTIONS (1)
  - Haemorrhage [Unknown]
